FAERS Safety Report 5894775-2 (Version None)
Quarter: 2008Q3

REPORT INFORMATION
  Report Type: 
  Country: None (occurrence: None)
  Receive Date: 20080924
  Receipt Date: 20080502
  Transmission Date: 20090109
  Serious: No
  Sender: FDA-Public Use
  Company Number: US-ASTRAZENECA-2008UW09141

PATIENT
  Age: 56 Year
  Sex: Female
  Weight: 108.9 kg

DRUGS (10)
  1. SEROQUEL [Suspect]
     Indication: INSOMNIA
     Route: 048
  2. SEROQUEL [Suspect]
     Indication: DEPRESSION
     Route: 048
  3. SEROQUEL [Suspect]
     Indication: MOOD SWINGS
     Route: 048
  4. METHADONE HCL [Concomitant]
  5. KLONOPIN [Concomitant]
  6. ZOLOFT [Concomitant]
  7. MORPHINE [Concomitant]
  8. LISINOPRIL [Concomitant]
  9. FIORICET [Concomitant]
  10. MELATONIN [Concomitant]

REACTIONS (9)
  - CONSTIPATION [None]
  - DYSPHAGIA [None]
  - DYSPNOEA [None]
  - HALLUCINATION [None]
  - HEADACHE [None]
  - HEART RATE DECREASED [None]
  - HYPERHIDROSIS [None]
  - OBESITY [None]
  - PALPITATIONS [None]
